FAERS Safety Report 12986663 (Version 1)
Quarter: 2016Q4

REPORT INFORMATION
  Report Type: Spontaneous
  Country: FR (occurrence: FR)
  Receive Date: 20161130
  Receipt Date: 20161130
  Transmission Date: 20170207
  Serious: Yes (Hospitalization, Other)
  Sender: FDA-Public Use
  Company Number: FR-PFIZER INC-2016546484

PATIENT
  Age: 43 Year
  Sex: Female

DRUGS (2)
  1. CELEBREX [Suspect]
     Active Substance: CELECOXIB
     Indication: TORTICOLLIS
     Dosage: 0-2 TABLETS DAILY AS NEEDED IN CURES OF 3-4 WEEKS ABOUT TWICE YEARLY
     Route: 048
     Dates: start: 2008
  2. SERTRALINE [Concomitant]
     Active Substance: SERTRALINE HYDROCHLORIDE
     Dosage: UNK

REACTIONS (13)
  - Urticaria [Recovered/Resolved]
  - Chills [Recovered/Resolved]
  - Headache [Unknown]
  - Abdominal pain [Unknown]
  - Vomiting [Unknown]
  - Throat tightness [Recovered/Resolved]
  - Hypoaesthesia [Unknown]
  - Nasal obstruction [Recovered/Resolved]
  - Anaphylactic shock [Recovered/Resolved]
  - Defaecation urgency [Unknown]
  - Loss of consciousness [Unknown]
  - Pruritus [Recovered/Resolved]
  - Vertigo [Unknown]

NARRATIVE: CASE EVENT DATE: 20150602
